FAERS Safety Report 10534229 (Version 4)
Quarter: 2015Q2

REPORT INFORMATION
  Report Type: Report from Study
  Country: DE (occurrence: DE)
  Receive Date: 20141022
  Receipt Date: 20150511
  Transmission Date: 20150821
  Serious: Yes (Death, Hospitalization, Other)
  Sender: FDA-Public Use
  Company Number: PHHY2014DE137104

PATIENT
  Sex: Male
  Weight: 125 kg

DRUGS (9)
  1. CIPROFLOXACIN. [Concomitant]
     Active Substance: CIPROFLOXACIN
     Indication: URINARY TRACT INFECTION
     Dosage: 2 DF, QD (500 MG)
     Route: 065
     Dates: start: 20140611, end: 20140616
  2. LIPONSAEURE ^RATIOPHARM^ [Concomitant]
     Indication: POLYNEUROPATHY
     Dosage: 600 MG, IN 250 ML NACL DAILY
     Route: 065
     Dates: start: 20140509, end: 20140602
  3. LYRICA [Concomitant]
     Active Substance: PREGABALIN
     Indication: POLYNEUROPATHY
     Dosage: 150 MG, QD
     Route: 065
     Dates: start: 20140902
  4. ACARBOSE RATIOPHARM [Concomitant]
     Indication: DIABETES MELLITUS
     Dosage: 300 MG, QD
     Route: 065
     Dates: start: 20101115
  5. STALEVO [Concomitant]
     Active Substance: CARBIDOPA\ENTACAPONE\LEVODOPA
     Indication: PARKINSONISM
     Dosage: 1 DF, QD, 150/37.5/600 MG
     Route: 065
     Dates: start: 20130718
  6. EUCREAS [Concomitant]
     Active Substance: METFORMIN HYDROCHLORIDE\VILDAGLIPTIN
     Indication: DIABETES MELLITUS
     Dosage: 1 DF, QD (100 MG VILDAGLIPTIN/1700 MG METFORMIN)
     Route: 048
     Dates: start: 20101004, end: 20140701
  7. AZILECT [Concomitant]
     Active Substance: RASAGILINE MESYLATE
     Indication: PARKINSONISM
     Dosage: 1 DF, QD (1 MG)
     Route: 065
     Dates: start: 20140522
  8. VALSARTAN HCT [Concomitant]
     Active Substance: HYDROCHLOROTHIAZIDE\VALSARTAN
     Indication: CORONARY ARTERY DISEASE
     Dosage: 1 DF, QD (80/12.5 MG)
     Route: 065
     Dates: start: 20111128
  9. QVA149 [Suspect]
     Active Substance: INVESTIGATIONAL PRODUCT
     Indication: CHRONIC OBSTRUCTIVE PULMONARY DISEASE
     Dosage: 1 DF, QD (85/43 UG)
     Route: 065
     Dates: start: 20140314

REACTIONS (6)
  - Urinary tract infection [Recovered/Resolved]
  - Renal failure [Fatal]
  - Atrial fibrillation [Not Recovered/Not Resolved]
  - Malaise [Recovered/Resolved]
  - Aortic aneurysm rupture [Fatal]
  - Multi-organ failure [Fatal]

NARRATIVE: CASE EVENT DATE: 20140611
